FAERS Safety Report 7145902-0 (Version None)
Quarter: 2010Q4

REPORT INFORMATION
  Report Type: 
  Country: None (occurrence: None)
  Receive Date: 20101208
  Receipt Date: 20101125
  Transmission Date: 20110411
  Serious: No
  Sender: FDA-Public Use
  Company Number: BR-ELI_LILLY_AND_COMPANY-BR201010004961

PATIENT
  Sex: Male

DRUGS (2)
  1. FORTEO [Suspect]
     Dosage: UNK, DAILY (1/D)
     Route: 065
     Dates: start: 20080101
  2. TRAMADOL [Concomitant]
     Indication: PAIN
     Dosage: UNK, UNKNOWN
     Route: 065

REACTIONS (2)
  - MOVEMENT DISORDER [None]
  - PAIN [None]
